FAERS Safety Report 8993273 (Version 1)
Quarter: 2013Q1

REPORT INFORMATION
  Report Type: Spontaneous
  Country: AT (occurrence: AT)
  Receive Date: 20130102
  Receipt Date: 20130102
  Transmission Date: 20140127
  Serious: Yes (Life-Threatening)
  Sender: FDA-Public Use
  Company Number: AT-WATSON-2012-22901

PATIENT
  Age: 21 Year
  Sex: Female

DRUGS (11)
  1. MIDAZOLAM [Suspect]
     Indication: ANAESTHESIA PROCEDURE
     Dosage: 7.5 MG, UNK
     Route: 048
  2. RANITIDINE HYDROCHLORIDE [Suspect]
     Indication: ANAESTHESIA PROCEDURE
     Dosage: 50 MG, UNKNOWN
     Route: 065
  3. FENTANYL [Suspect]
     Indication: ANAESTHESIA PROCEDURE
     Dosage: .15 MG, UNK
     Route: 065
  4. PROPOFOL [Suspect]
     Indication: ANAESTHESIA PROCEDURE
     Dosage: 200 MG, UNK
     Route: 042
  5. PROPOFOL [Suspect]
     Dosage: 400 MG/H
     Route: 065
  6. NEOSTIGMINE [Suspect]
     Indication: ANAESTHESIA PROCEDURE
     Dosage: 3.2 MG, UNKNOWN
     Route: 065
  7. DICLOFENAC [Concomitant]
     Indication: ANAESTHESIA PROCEDURE
     Dosage: 75 MG, UNKNOWN
     Route: 065
  8. ROCURONIUM [Concomitant]
     Indication: ANAESTHESIA PROCEDURE
     Dosage: 25 MG, UNKNOWN
     Route: 065
  9. GLYCOPYRRONIUM [Suspect]
     Indication: ANAESTHESIA PROCEDURE
     Dosage: 0.6 MG, UNKNOWN
     Route: 065
  10. NITROUS OXIDE AIR [Suspect]
     Indication: ANAESTHESIA PROCEDURE
     Dosage: UNK, UNKNOWN
     Route: 065
  11. OXYGEN [Suspect]
     Indication: ANAESTHESIA PROCEDURE
     Dosage: UNK, UNKNOWN
     Route: 065

REACTIONS (2)
  - Atrioventricular dissociation [Unknown]
  - Drug interaction [Unknown]
